FAERS Safety Report 4560651-0 (Version None)
Quarter: 2005Q1

REPORT INFORMATION
  Report Type: 
  Country: None (occurrence: None)
  Receive Date: 20050124
  Receipt Date: 20050124
  Transmission Date: 20050727
  Serious: Yes (Hospitalization)
  Sender: FDA-Public Use
  Company Number: None

PATIENT
  Age: 42 Year
  Sex: Female
  Weight: 48 kg

DRUGS (8)
  1. TEQUIN [Suspect]
     Indication: SINUSITIS
     Dosage: ORAL ROUTE- 400 MG DAILY
     Route: 048
     Dates: start: 20040821, end: 20040830
  2. LACTULOSE [Concomitant]
  3. PROPRANOLOL [Concomitant]
  4. NEOMYCIN [Concomitant]
  5. SPIRONOLACTONE [Concomitant]
  6. URSODIOL [Concomitant]
  7. DARBEPOETIN [Concomitant]
  8. TEQUIN [Concomitant]

REACTIONS (6)
  - ASTHENIA [None]
  - BLOOD GLUCOSE INCREASED [None]
  - DIZZINESS [None]
  - HYPERPHAGIA [None]
  - POLYDIPSIA [None]
  - POLYURIA [None]
